FAERS Safety Report 8517390-0 (Version None)
Quarter: 2012Q3

REPORT INFORMATION
  Report Type: 
  Country: None (occurrence: None)
  Receive Date: 20120718
  Receipt Date: 20120706
  Transmission Date: 20120928
  Serious: Yes (Other)
  Sender: FDA-Public Use
  Company Number: TR-BAYER-2012-057812

PATIENT
  Age: 70 Year
  Sex: Female

DRUGS (1)
  1. SORAFENIB (RAF KINASE INHIBITOR) [Suspect]
     Indication: HEPATIC NEOPLASM MALIGNANT
     Dosage: 800 MG, UNK
     Route: 048
     Dates: start: 20120504, end: 20120623

REACTIONS (11)
  - DYSPNOEA [None]
  - PAIN [None]
  - HYPERTENSION [None]
  - GENERALISED OEDEMA [None]
  - CONTUSION [None]
  - MOBILITY DECREASED [None]
  - PERIORBITAL HAEMATOMA [None]
  - HYPERGLYCAEMIA [None]
  - LOSS OF CONSCIOUSNESS [None]
  - ASTHENIA [None]
  - BLISTER [None]
